FAERS Safety Report 7057378-2 (Version None)
Quarter: 2010Q4

REPORT INFORMATION
  Report Type: 
  Country: None (occurrence: None)
  Receive Date: 20101022
  Receipt Date: 20101014
  Transmission Date: 20110411
  Serious: Yes (Other)
  Sender: FDA-Public Use
  Company Number: JP-JNJFOC-20101002345

PATIENT
  Age: 10 Year
  Sex: Male

DRUGS (2)
  1. CONCERTA [Suspect]
     Indication: ATTENTION DEFICIT/HYPERACTIVITY DISORDER
     Dosage: IN THE MORNING
     Route: 048
     Dates: start: 20100725, end: 20101014
  2. STRATTERA [Concomitant]
     Indication: ATTENTION DEFICIT/HYPERACTIVITY DISORDER
     Dosage: ONCE DAILY AT NIGHT
     Route: 048

REACTIONS (3)
  - AMIMIA [None]
  - INDIFFERENCE [None]
  - PETIT MAL EPILEPSY [None]
